FAERS Safety Report 13788098 (Version 1)
Quarter: 2017Q3

REPORT INFORMATION
  Report Type: Spontaneous
  Country: US (occurrence: US)
  Receive Date: 20170725
  Receipt Date: 20170725
  Transmission Date: 20171127
  Serious: Yes (Hospitalization)
  Sender: FDA-Public Use
  Company Number: US-VALIDUS PHARMACEUTICALS LLC-US-2017VAL001086

PATIENT
  Age: 82 Year
  Sex: Female

DRUGS (4)
  1. CALCITONIN [Suspect]
     Active Substance: CALCITONIN
     Indication: HYPERCALCAEMIA
     Dosage: UNK
     Route: 065
  2. CALCITONIN [Suspect]
     Active Substance: CALCITONIN
     Indication: HYPERVITAMINOSIS
  3. ERGOCALCIFEROL. [Suspect]
     Active Substance: ERGOCALCIFEROL
     Indication: SUPPLEMENTATION THERAPY
     Dosage: 50000 IU, WEEKLY
     Route: 065
  4. CALCIUM SALT [Suspect]
     Active Substance: CALCIUM
     Indication: SUPPLEMENTATION THERAPY
     Dosage: UNK UNK, QD
     Route: 065

REACTIONS (12)
  - Blood 25-hydroxycholecalciferol increased [Recovering/Resolving]
  - Hypervitaminosis [Recovering/Resolving]
  - Drug ineffective [Unknown]
  - Weight decreased [Recovering/Resolving]
  - Hypercalcaemia [Recovering/Resolving]
  - Confusional state [Recovering/Resolving]
  - Decreased appetite [Recovering/Resolving]
  - Nephrolithiasis [Recovering/Resolving]
  - Hallucination [Recovering/Resolving]
  - Mucosal dryness [Recovering/Resolving]
  - Skin turgor decreased [Recovering/Resolving]
  - Calculus bladder [Recovered/Resolved]
